FAERS Safety Report 15934646 (Version 1)
Quarter: 2019Q1

REPORT INFORMATION
  Report Type: Spontaneous
  Country: US (occurrence: US)
  Receive Date: 20190207
  Receipt Date: 20190207
  Transmission Date: 20190417
  Serious: Yes (Other)
  Sender: FDA-Public Use
  Company Number: PHEH2019US005566

PATIENT
  Age: 56 Year
  Sex: Female
  Weight: 75.75 kg

DRUGS (3)
  1. ZOFRAN [Suspect]
     Active Substance: ONDANSETRON HYDROCHLORIDE
     Indication: NAUSEA
     Dosage: UNK
     Route: 065
  2. IBRANCE [Suspect]
     Active Substance: PALBOCICLIB
     Indication: BREAST CANCER STAGE IV
     Dosage: 100 MG, Q3W (EVERY 21 DAYS)
     Route: 048
     Dates: start: 2017
  3. PHENERGAN [Suspect]
     Active Substance: PROMETHAZINE HYDROCHLORIDE
     Indication: NAUSEA
     Dosage: UNK
     Route: 065

REACTIONS (9)
  - Dysuria [Not Recovered/Not Resolved]
  - Weight decreased [Unknown]
  - White blood cell count decreased [Not Recovered/Not Resolved]
  - Arthritis [Not Recovered/Not Resolved]
  - Cystitis [Not Recovered/Not Resolved]
  - Spinal fracture [Recovered/Resolved]
  - Eating disorder [Unknown]
  - Bone cancer [Unknown]
  - Headache [Unknown]

NARRATIVE: CASE EVENT DATE: 20181228
